FAERS Safety Report 14963943 (Version 1)
Quarter: 2018Q2

REPORT INFORMATION
  Report Type: Spontaneous
  Country: JP (occurrence: JP)
  Receive Date: 20180601
  Receipt Date: 20180601
  Transmission Date: 20180711
  Serious: Yes (Life-Threatening, Hospitalization, Other)
  Sender: FDA-Public Use
  Company Number: JP-SAKK-BA201800863001

PATIENT
  Age: 59 Year
  Sex: Female
  Weight: 45 kg

DRUGS (9)
  1. TOPOTECIN [Suspect]
     Active Substance: IRINOTECAN HYDROCHLORIDE
     Indication: PRODUCT USED FOR UNKNOWN INDICATION
     Dosage: 200 MG, 1X
     Route: 065
     Dates: start: 20170622, end: 20171019
  2. DECADRON [DEXAMETHASONE SODIUM PHOSPHATE] [Concomitant]
     Indication: PRODUCT USED FOR UNKNOWN INDICATION
     Dosage: 6.6 MG, 1X
     Route: 042
     Dates: start: 20180203
  3. FLUOROURACIL. [Concomitant]
     Active Substance: FLUOROURACIL
     Indication: COLON CANCER
     Dosage: UNK, 1X
     Route: 042
     Dates: start: 20180203, end: 20180205
  4. ELPLAT [Suspect]
     Active Substance: OXALIPLATIN
     Indication: PRODUCT USED FOR UNKNOWN INDICATION
     Dosage: 120 MG, 1X
     Route: 065
     Dates: start: 20170608, end: 20171005
  5. CAMPTO [Concomitant]
     Active Substance: IRINOTECAN
     Dosage: UNK
  6. CALCIUM LEVOFOLINATE [Concomitant]
     Active Substance: LEVOLEUCOVORIN CALCIUM
     Indication: COLON CANCER
     Dosage: 275 MG, 1X
     Route: 042
     Dates: start: 20180203
  7. ZALTRAP [Suspect]
     Active Substance: ZIV-AFLIBERCEPT
     Indication: HEPATIC CANCER
     Dosage: 4 MG/M2, 1X
     Route: 042
     Dates: start: 20180203
  8. AVASTIN [Suspect]
     Active Substance: BEVACIZUMAB
     Indication: PRODUCT USED FOR UNKNOWN INDICATION
     Dosage: 250 MG, 1X
     Route: 065
     Dates: start: 20170608, end: 20171019
  9. CAMPTO [Concomitant]
     Active Substance: IRINOTECAN
     Indication: COLON CANCER
     Dosage: 200 MG, QD
     Route: 042
     Dates: start: 20180203, end: 20180205

REACTIONS (21)
  - Blood urea increased [None]
  - Carcinoembryonic antigen increased [None]
  - White blood cell count decreased [None]
  - Ventricular fibrillation [None]
  - Aspartate aminotransferase increased [None]
  - Haematocrit decreased [None]
  - Red blood cell count decreased [None]
  - Fall [None]
  - Blood pressure systolic increased [None]
  - Alanine aminotransferase increased [None]
  - Lymphocyte percentage decreased [None]
  - Neutrophil percentage increased [None]
  - Vomiting [None]
  - Seizure [None]
  - Blood alkaline phosphatase increased [None]
  - Carbohydrate antigen 19-9 increased [None]
  - Monocyte percentage decreased [None]
  - Ventricular arrhythmia [Recovered/Resolved]
  - Cardio-respiratory arrest [None]
  - Orthostatic hypotension [None]
  - Hyperventilation [None]

NARRATIVE: CASE EVENT DATE: 20180206
